FAERS Safety Report 7997243-7 (Version None)
Quarter: 2011Q4

REPORT INFORMATION
  Report Type: 
  Country: None (occurrence: None)
  Receive Date: 20111221
  Receipt Date: 20111212
  Transmission Date: 20120403
  Serious: Yes (Other)
  Sender: FDA-Public Use
  Company Number: US-JNJFOC-20071100607

PATIENT
  Age: 15 Year
  Sex: Female
  Weight: 56.7 kg

DRUGS (2)
  1. SUDAFED 24 HOUR [Suspect]
     Indication: ILL-DEFINED DISORDER
     Route: 065
     Dates: start: 20071030, end: 20071030
  2. SUDAFED 24 HOUR [Suspect]
     Route: 065

REACTIONS (2)
  - INAPPROPRIATE SCHEDULE OF DRUG ADMINISTRATION [None]
  - OVERDOSE [None]
